FAERS Safety Report 4361229-4 (Version None)
Quarter: 2004Q2

REPORT INFORMATION
  Report Type: 
  Country: None (occurrence: None)
  Receive Date: 20040518
  Receipt Date: 20040430
  Transmission Date: 20050107
  Serious: Yes (Hospitalization)
  Sender: FDA-Public Use
  Company Number: CERZ-10532

PATIENT
  Age: 39 Year
  Sex: Male
  Weight: 75 kg

DRUGS (1)
  1. CEREZYME [Suspect]
     Indication: GAUCHER'S DISEASE
     Dosage: 55 U/KG Q2WKS IV
     Route: 042
     Dates: start: 20030711, end: 20040216

REACTIONS (9)
  - EOSINOPHILIA [None]
  - ERYTHROSIS [None]
  - HAEMATOMA [None]
  - HEPATOMEGALY [None]
  - IDIOPATHIC THROMBOCYTOPENIC PURPURA [None]
  - MENINGORRHAGIA [None]
  - MUSCULOSKELETAL STIFFNESS [None]
  - PHARYNGITIS [None]
  - RHINITIS [None]
